FAERS Safety Report 5590121-2 (Version None)
Quarter: 2008Q1

REPORT INFORMATION
  Report Type: 
  Country: None (occurrence: None)
  Receive Date: 20080114
  Receipt Date: 20070425
  Transmission Date: 20080703
  Serious: No
  Sender: FDA-Public Use
  Company Number: US-ABBOTT-07P-163-0366315-00

PATIENT
  Sex: Female
  Weight: 13.166 kg

DRUGS (1)
  1. OMNICEF [Suspect]
     Indication: OTITIS MEDIA
     Route: 048
     Dates: start: 20070402, end: 20070411

REACTIONS (2)
  - DIARRHOEA [None]
  - OCCULT BLOOD POSITIVE [None]
